FAERS Safety Report 16187731 (Version 1)
Quarter: 2019Q2

REPORT INFORMATION
  Report Type: Spontaneous
  Country: US (occurrence: US)
  Receive Date: 20190412
  Receipt Date: 20190412
  Transmission Date: 20190711
  Serious: Yes (Other)
  Sender: FDA-Public Use
  Company Number: US-ASTRAZENECA-2019SE53619

PATIENT
  Sex: Male
  Weight: 85.3 kg

DRUGS (8)
  1. QUETIAPINE FUMARATE. [Suspect]
     Active Substance: QUETIAPINE FUMARATE
     Indication: BIPOLAR I DISORDER
     Dosage: THREE 200 MG EVERY EVENING
     Route: 048
  2. PROZAC [Concomitant]
     Active Substance: FLUOXETINE HYDROCHLORIDE
  3. QUETIAPINE FUMARATE. [Suspect]
     Active Substance: QUETIAPINE FUMARATE
     Indication: BIPOLAR I DISORDER
     Dosage: GENERIC QUETIAPINE FUMARATE XR
     Route: 065
  4. STOOL SOFTNER, UNSPECIFIED [Concomitant]
     Indication: CONSTIPATION
  5. MINERALS NOS [Concomitant]
     Active Substance: MINERALS
  6. MAGNESIUM [Concomitant]
     Active Substance: MAGNESIUM
     Indication: BOWEL MOVEMENT IRREGULARITY
  7. PROZAC [Concomitant]
     Active Substance: FLUOXETINE HYDROCHLORIDE
  8. VITAMINS NOS [Concomitant]
     Active Substance: VITAMINS

REACTIONS (3)
  - Seizure [Recovered/Resolved]
  - Road traffic accident [Unknown]
  - Amnesia [Not Recovered/Not Resolved]
